FAERS Safety Report 24566717 (Version 3)
Quarter: 2024Q4

REPORT INFORMATION
  Report Type: Spontaneous
  Country: US (occurrence: US)
  Receive Date: 20241030
  Receipt Date: 20241224
  Transmission Date: 20250115
  Serious: Yes (Hospitalization)
  Sender: CSL BEHRING
  Company Number: US-BEH-2024183099

PATIENT
  Age: 57 Year
  Sex: Female

DRUGS (1)
  1. HIZENTRA [Suspect]
     Active Substance: HUMAN IMMUNOGLOBULIN G
     Indication: Immunodeficiency common variable
     Dosage: STRENGTH 10/50 ML
     Route: 065
     Dates: start: 20240824, end: 20240830

REACTIONS (5)
  - Dyspnoea [Recovered/Resolved]
  - Asthenia [Recovered/Resolved]
  - Product availability issue [Recovering/Resolving]
  - Swelling face [Unknown]
  - Flushing [Unknown]

NARRATIVE: CASE EVENT DATE: 20240824
